FAERS Safety Report 12777571 (Version 1)
Quarter: 2016Q3

REPORT INFORMATION
  Report Type: Report from Study
  Country: AU (occurrence: AU)
  Receive Date: 20160924
  Receipt Date: 20160924
  Transmission Date: 20161109
  Serious: Yes (Hospitalization, Other)
  Sender: FDA-Public Use
  Company Number: PHHY2015AU158449

PATIENT
  Age: 63 Year
  Sex: Male

DRUGS (5)
  1. GILENYA [Suspect]
     Active Substance: FINGOLIMOD HYDROCHLORIDE
     Indication: MULTIPLE SCLEROSIS
     Dosage: 0.5 MG, QD
     Route: 048
     Dates: start: 20141015
  2. ENALAPRIL [Suspect]
     Active Substance: ENALAPRIL
     Dosage: 20 MG
     Route: 065
     Dates: start: 20150911
  3. NAPROXEN. [Suspect]
     Active Substance: NAPROXEN
     Indication: PAIN MANAGEMENT
     Dosage: 250 MG, BID
     Route: 065
     Dates: end: 20150905
  4. ENALAPRIL [Suspect]
     Active Substance: ENALAPRIL
     Indication: HYPERTENSION
     Dosage: 20 MG
     Route: 065
     Dates: start: 20150907, end: 20150907
  5. VOLTAREN [Concomitant]
     Active Substance: DICLOFENAC SODIUM
     Indication: PRODUCT USED FOR UNKNOWN INDICATION
     Dosage: 50 MG, TDS
     Route: 065
     Dates: end: 20150903

REACTIONS (12)
  - Trigeminal neuralgia [Recovered/Resolved]
  - Upper gastrointestinal haemorrhage [Unknown]
  - Gastric ulcer [Unknown]
  - Blood glucose increased [Unknown]
  - Blood urea increased [Unknown]
  - Osteoarthritis [Unknown]
  - Renal impairment [Recovering/Resolving]
  - Gout [Unknown]
  - Pyrexia [Unknown]
  - Melaena [Unknown]
  - Creatinine renal clearance decreased [Unknown]
  - Urine output increased [Unknown]

NARRATIVE: CASE EVENT DATE: 20150801
